FAERS Safety Report 9917746 (Version 2)
Quarter: 2014Q1

REPORT INFORMATION
  Report Type: Spontaneous
  Country: US (occurrence: US)
  Receive Date: 20140221
  Receipt Date: 20140228
  Transmission Date: 20141002
  Serious: Yes (Hospitalization)
  Sender: FDA-Public Use
  Company Number: US-LUNDBECK-DKLU1097649

PATIENT
  Sex: Female

DRUGS (2)
  1. SABRIL (FOR ORAL SOLUTION) [Suspect]
     Indication: COMPLEX PARTIAL SEIZURES
     Route: 048
     Dates: start: 20091013
  2. LAMICTAL [Concomitant]
     Indication: PRODUCT USED FOR UNKNOWN INDICATION

REACTIONS (2)
  - Infection [Not Recovered/Not Resolved]
  - Influenza like illness [Unknown]
